FAERS Safety Report 15892845 (Version 1)
Quarter: 2019Q1

REPORT INFORMATION
  Report Type: Report from Study
  Country: US (occurrence: US)
  Receive Date: 20190130
  Receipt Date: 20190130
  Transmission Date: 20190417
  Serious: No
  Sender: FDA-Public Use
  Company Number: US-EXELIXIS-CABO-18016036

PATIENT
  Age: 66 Year
  Sex: Female

DRUGS (8)
  1. IMODIUM A-D [Concomitant]
     Active Substance: LOPERAMIDE HYDROCHLORIDE
  2. EXCEDRIN [Concomitant]
     Active Substance: ACETAMINOPHEN\ASPIRIN\CAFFEINE
  3. UDDERLY SMOOTH MOISTURIZING LOTION [Suspect]
     Active Substance: COSMETICS
  4. TUMS [Concomitant]
     Active Substance: CALCIUM CARBONATE
  5. PROAIR HFA [Concomitant]
     Active Substance: ALBUTEROL SULFATE
  6. CABOMETYX [Suspect]
     Active Substance: CABOZANTINIB S-MALATE
     Indication: RENAL CANCER
     Dosage: 40 MG, QD
     Route: 048
     Dates: start: 20180918, end: 20181012
  7. PROTONIX [Concomitant]
     Active Substance: PANTOPRAZOLE SODIUM
  8. ASPIRIN. [Concomitant]
     Active Substance: ASPIRIN

REACTIONS (17)
  - Oral discomfort [Recovering/Resolving]
  - Wound [Unknown]
  - Stress [Unknown]
  - Dysgeusia [Unknown]
  - Blood pressure increased [Unknown]
  - Hepatic enzyme increased [Unknown]
  - Dry skin [Unknown]
  - Rash pruritic [Unknown]
  - Lacrimation increased [Unknown]
  - Rash [Unknown]
  - Onychomycosis [Unknown]
  - Dizziness [Unknown]
  - Onychomadesis [Unknown]
  - Blood glucose decreased [Unknown]
  - Blister [Unknown]
  - Alopecia [Unknown]
  - Palmar-plantar erythrodysaesthesia syndrome [Unknown]

NARRATIVE: CASE EVENT DATE: 2018
